FAERS Safety Report 9888434 (Version 11)
Quarter: 2014Q3

REPORT INFORMATION
  Report Type: Spontaneous
  Country: IL (occurrence: IL)
  Receive Date: 20140211
  Receipt Date: 20140724
  Transmission Date: 20150326
  Serious: Yes (Other)
  Sender: FDA-Public Use
  Company Number: IL-PFIZER INC-2014028972

PATIENT
  Age: 58 Year
  Sex: Male

DRUGS (11)
  1. TARGIN [Concomitant]
     Active Substance: NALOXONE HYDROCHLORIDE\OXYCODONE HYDROCHLORIDE
     Indication: BACK PAIN
     Dosage: UNK
  2. PERCOCET [Concomitant]
     Active Substance: ACETAMINOPHEN\OXYCODONE HYDROCHLORIDE
     Indication: BACK PAIN
     Dosage: UNK
  3. NEOBLOC [Concomitant]
     Dosage: UNK
  4. JANUVIA [Concomitant]
     Active Substance: SITAGLIPTIN PHOSPHATE
     Dosage: UNK
  5. ENALADEX [Concomitant]
     Active Substance: ENALAPRIL MALEATE
     Dosage: UNK
  6. LIPITOR [Concomitant]
     Active Substance: ATORVASTATIN CALCIUM
     Dosage: UNK
  7. OPTALGIN [Concomitant]
     Active Substance: METAMIZOLE
     Indication: BACK PAIN
     Dosage: UNK
  8. CARTIA XT [Concomitant]
     Active Substance: DILTIAZEM HYDROCHLORIDE
     Dosage: UNK
  9. SUTENT [Suspect]
     Active Substance: SUNITINIB MALATE
     Indication: METASTATIC RENAL CELL CARCINOMA
     Dosage: 50 MG, ONCE DAILY, CYCLE
     Route: 048
     Dates: start: 20140117, end: 20140505
  10. CANNABIS [Concomitant]
     Active Substance: CANNABIS SATIVA SUBSP. INDICA TOP
  11. OMEPRADEX [Concomitant]
     Active Substance: OMEPRAZOLE
     Dosage: UNK

REACTIONS (29)
  - Cardiac failure [Not Recovered/Not Resolved]
  - Haemoglobin decreased [Not Recovered/Not Resolved]
  - Decreased appetite [Recovering/Resolving]
  - Diarrhoea [Recovered/Resolved]
  - Blood urine present [Recovered/Resolved]
  - Rectal haemorrhage [Recovered/Resolved]
  - Oral pain [Not Recovered/Not Resolved]
  - Pain of skin [Unknown]
  - Dyspnoea exertional [Recovered/Resolved]
  - Cough [Not Recovered/Not Resolved]
  - Nausea [Recovered/Resolved]
  - Oral discomfort [Recovered/Resolved]
  - Dyspnoea [Recovered/Resolved]
  - Asthenia [Unknown]
  - Pain in extremity [Not Recovered/Not Resolved]
  - Metastatic renal cell carcinoma [Not Recovered/Not Resolved]
  - Gastrointestinal oedema [Not Recovered/Not Resolved]
  - Oedema peripheral [Not Recovered/Not Resolved]
  - White blood cell count decreased [Recovering/Resolving]
  - Skin lesion [Not Recovered/Not Resolved]
  - Blood pressure decreased [Unknown]
  - Blood pressure increased [Not Recovered/Not Resolved]
  - Blood sodium decreased [Recovering/Resolving]
  - Abdominal distension [Unknown]
  - Rectal haemorrhage [Unknown]
  - Fatigue [Not Recovered/Not Resolved]
  - Burning sensation [Recovered/Resolved]
  - Disease progression [Not Recovered/Not Resolved]
  - Back pain [Not Recovered/Not Resolved]

NARRATIVE: CASE EVENT DATE: 2014
